FAERS Safety Report 9932738 (Version 1)
Quarter: 2014Q1

REPORT INFORMATION
  Report Type: Spontaneous
  Country: US (occurrence: US)
  Receive Date: 20140228
  Receipt Date: 20140228
  Transmission Date: 20141002
  Serious: No
  Sender: FDA-Public Use
  Company Number: US-ABBVIE-13P-163-1080201-00

PATIENT
  Sex: Male

DRUGS (1)
  1. ANDROGEL [Suspect]
     Indication: BLOOD TESTOSTERONE DECREASED
     Dosage: ONE 5 GRAM PACKET DAILY
     Dates: start: 20130415, end: 20130415

REACTIONS (2)
  - Urticaria [Recovering/Resolving]
  - Blister [Recovering/Resolving]
